FAERS Safety Report 8166193-8 (Version None)
Quarter: 2012Q1

REPORT INFORMATION
  Report Type: 
  Country: None (occurrence: None)
  Receive Date: 20120227
  Receipt Date: 20110427
  Transmission Date: 20120608
  Serious: Yes (Other)
  Sender: FDA-Public Use
  Company Number: US-MYLANLABS-2011S1008812

PATIENT
  Sex: Male

DRUGS (3)
  1. ACCUTANE [Suspect]
     Dates: start: 20000101
  2. ACCUTANE [Suspect]
     Indication: ACNE
     Dates: start: 19920101, end: 19940101
  3. AMNESTEEM [Suspect]
     Indication: ACNE
     Dates: start: 20060101, end: 20070101

REACTIONS (1)
  - INFLAMMATORY BOWEL DISEASE [None]
